FAERS Safety Report 12851627 (Version 1)
Quarter: 2016Q4

REPORT INFORMATION
  Report Type: Spontaneous
  Country: US (occurrence: US)
  Receive Date: 20161014
  Receipt Date: 20161014
  Transmission Date: 20170207
  Serious: Yes (Disabling)
  Sender: FDA-Public Use
  Company Number: None

PATIENT
  Age: 56 Year
  Sex: Male
  Weight: 99.9 kg

DRUGS (3)
  1. ASPIRIN. [Concomitant]
     Active Substance: ASPIRIN
  2. CIALIS [Concomitant]
     Active Substance: TADALAFIL
  3. DOXAZOSIN [Suspect]
     Active Substance: DOXAZOSIN\DOXAZOSIN MESYLATE
     Indication: BENIGN PROSTATIC HYPERPLASIA
     Dosage: ?          QUANTITY:30 TABLET(S);?
     Route: 048
     Dates: start: 20160915, end: 20161003

REACTIONS (5)
  - Panic attack [None]
  - Dizziness [None]
  - Erectile dysfunction [None]
  - Impaired driving ability [None]
  - Disturbance in attention [None]

NARRATIVE: CASE EVENT DATE: 20161014
